FAERS Safety Report 5896905-5 (Version None)
Quarter: 2008Q3

REPORT INFORMATION
  Report Type: 
  Country: None (occurrence: None)
  Receive Date: 20080924
  Receipt Date: 20080915
  Transmission Date: 20090109
  Serious: Yes (Other)
  Sender: FDA-Public Use
  Company Number: BR-PFIZER INC-2008078417

PATIENT
  Sex: Female

DRUGS (1)
  1. FRONTAL [Suspect]
     Indication: ANXIETY
     Route: 048

REACTIONS (3)
  - BLOOD PRESSURE INCREASED [None]
  - EMOTIONAL DISTRESS [None]
  - STENT PLACEMENT [None]
